FAERS Safety Report 22915443 (Version 2)
Quarter: 2023Q4

REPORT INFORMATION
  Report Type: Spontaneous
  Country: US (occurrence: US)
  Receive Date: 20230907
  Receipt Date: 20231110
  Transmission Date: 20240109
  Serious: Yes (Hospitalization, Other)
  Sender: FDA-Public Use
  Company Number: US-CIPLA LTD.-2023US05166

PATIENT

DRUGS (1)
  1. BUPROPION [Suspect]
     Active Substance: BUPROPION
     Dosage: UNK, (6000 MG OF BUPROPION EXTENDED-RELEASE TABLETS (79 MG/KG))
     Route: 048

REACTIONS (10)
  - Cardiotoxicity [Recovered/Resolved]
  - Toxicity to various agents [Recovered/Resolved]
  - Status epilepticus [Recovered/Resolved]
  - Mydriasis [Recovered/Resolved]
  - Intentional overdose [Recovered/Resolved]
  - Suicide attempt [Recovered/Resolved]
  - Sinus tachycardia [Recovered/Resolved]
  - Generalised tonic-clonic seizure [Recovered/Resolved]
  - Hallucination [Recovered/Resolved]
  - Confusional state [Recovered/Resolved]
